FAERS Safety Report 8849326 (Version 1)
Quarter: 2012Q4

REPORT INFORMATION
  Report Type: Spontaneous
  Country: US (occurrence: None)
  Receive Date: 20121017
  Receipt Date: 20121017
  Transmission Date: 20130627
  Serious: Yes (Other)
  Sender: FDA-Public Use
  Company Number: None

PATIENT
  Age: 63 Year
  Sex: Female
  Weight: 99.34 kg

DRUGS (1)
  1. CIPROFLOXACIN [Suspect]
     Indication: UTI
     Route: 041
     Dates: start: 20121011, end: 20121014

REACTIONS (4)
  - Tremor [None]
  - Blood glucose increased [None]
  - Convulsion [None]
  - Unresponsive to stimuli [None]
